FAERS Safety Report 14682216 (Version 1)
Quarter: 2018Q1

REPORT INFORMATION
  Report Type: Report from Study
  Country: US (occurrence: US)
  Receive Date: 20180326
  Receipt Date: 20180326
  Transmission Date: 20180509
  Serious: No
  Sender: FDA-Public Use
  Company Number: PHEH2018US010845

PATIENT
  Age: 72 Year
  Sex: Male

DRUGS (2)
  1. CARVEDILOL. [Concomitant]
     Active Substance: CARVEDILOL
     Indication: TACHYCARDIA
     Route: 065
  2. PROMACTA [Suspect]
     Active Substance: ELTROMBOPAG OLAMINE
     Indication: PLATELET COUNT DECREASED
     Dosage: 75 MG, QD
     Route: 048
     Dates: start: 20180131

REACTIONS (3)
  - Chest discomfort [Not Recovered/Not Resolved]
  - Peripheral swelling [Not Recovered/Not Resolved]
  - Heart rate increased [Not Recovered/Not Resolved]

NARRATIVE: CASE EVENT DATE: 20180223
